FAERS Safety Report 4634813-8 (Version None)
Quarter: 2005Q2

REPORT INFORMATION
  Report Type: 
  Country: None (occurrence: None)
  Receive Date: 20050412
  Receipt Date: 20050330
  Transmission Date: 20051028
  Serious: Yes (Death)
  Sender: FDA-Public Use
  Company Number: 2005040579

PATIENT
  Sex: Male

DRUGS (10)
  1. GENOTROPIN [Suspect]
     Indication: HYPOPITUITARISM
     Dosage: 0.2 MG (0.2 MG, DAILY), INTRAMUSCULAR
     Route: 030
     Dates: start: 19980731, end: 20040101
  2. HYDROCORTISONE [Concomitant]
  3. QUINAPRIL HCL [Concomitant]
  4. ATORVASTATIN CALCIUM [Concomitant]
  5. LEVOTHYROXINE SODIUM [Concomitant]
  6. ASPIRIN [Concomitant]
  7. IPRATROPIUM BROMIDE [Concomitant]
  8. SYMBICORT TURBUHALER ^DRACO^ (BUDESONIDE, FORMOTEROL FUMARATE) [Concomitant]
  9. AMIODARONE HCL [Concomitant]
  10. SUSTANON (TESTOSTERONE CAPRINOYLACETATE, TESTOSTERONE ISOCAPROATE, TES [Concomitant]

REACTIONS (1)
  - DEATH [None]
